FAERS Safety Report 16248171 (Version 2)
Quarter: 2020Q1

REPORT INFORMATION
  Report Type: Other
  Country: FR (occurrence: FR)
  Receive Date: 20190428
  Receipt Date: 20200316
  Transmission Date: 20200409
  Serious: Yes (Hospitalization)
  Sender: FDA-Public Use
  Company Number: FR-CELLTRION INC.-2019FR020522

PATIENT

DRUGS (8)
  1. BACTRIM [Suspect]
     Active Substance: SULFAMETHOXAZOLE\TRIMETHOPRIM
     Indication: OPPORTUNISTIC INFECTION PROPHYLAXIS
     Dosage: 3 DF, ONCE A WEEK  (800/160 MG)
     Route: 048
     Dates: start: 20190212, end: 20190318
  2. ENDOXAN [Suspect]
     Active Substance: CYCLOPHOSPHAMIDE
     Indication: CHRONIC LYMPHOCYTIC LEUKAEMIA
     Dosage: 500 MG, QD (C1)
     Route: 048
     Dates: start: 20190212, end: 20190214
  3. VALACICLOVIR BIOGARAN 500MG [Suspect]
     Active Substance: VALACYCLOVIR HYDROCHLORIDE
     Indication: OPPORTUNISTIC INFECTION PROPHYLAXIS
     Dosage: 1000 MG, QD  (1-0-1)
     Route: 048
     Dates: start: 20190212, end: 20190318
  4. ENDOXAN [Suspect]
     Active Substance: CYCLOPHOSPHAMIDE
     Dosage: 400 MG, QD (C2)
     Route: 048
     Dates: start: 20190313, end: 20190315
  5. TRUXIMA [Suspect]
     Active Substance: RITUXIMAB-ABBS
     Indication: CHRONIC LYMPHOCYTIC LEUKAEMIA
     Dosage: 1000 MG (1 TOTAL)
     Route: 042
     Dates: start: 20190312, end: 20190312
  6. FLUDARABINE (PHOSPHATE DE) [Suspect]
     Active Substance: FLUDARABINE PHOSPHATE
     Indication: CHRONIC LYMPHOCYTIC LEUKAEMIA
     Dosage: 80 MG, QD (C1)
     Route: 042
     Dates: start: 20190214, end: 20190216
  7. ALLOPURINOL BIOGARAN [Suspect]
     Active Substance: ALLOPURINOL
     Indication: TUMOUR LYSIS SYNDROME
     Dosage: 300 MG, QD (0-0-1)
     Route: 048
     Dates: start: 201902, end: 20190318
  8. FLUDARABINE (PHOSPHATE DE) [Suspect]
     Active Substance: FLUDARABINE PHOSPHATE
     Dosage: 60 MG, QD (C2)
     Route: 042
     Dates: start: 20190313, end: 20190315

REACTIONS (7)
  - Eosinophilia [Recovering/Resolving]
  - Face oedema [Recovering/Resolving]
  - Product use issue [Unknown]
  - Rash maculo-papular [Recovering/Resolving]
  - Urticaria [Recovering/Resolving]
  - Pruritus [Recovering/Resolving]
  - Rash pustular [Recovering/Resolving]

NARRATIVE: CASE EVENT DATE: 20190318
